FAERS Safety Report 23390205 (Version 2)
Quarter: 2024Q1

REPORT INFORMATION
  Report Type: Spontaneous
  Country: CZ (occurrence: CZ)
  Receive Date: 20240111
  Receipt Date: 20240328
  Transmission Date: 20240409
  Serious: Yes (Congenital Anomaly, Other)
  Sender: FDA-Public Use
  Company Number: CZ-TEVA-VS-3142196

PATIENT

DRUGS (1)
  1. COPAXONE [Suspect]
     Active Substance: GLATIRAMER ACETATE
     Indication: Relapsing-remitting multiple sclerosis
     Dosage: DOSAGE: 40 MG/ML
     Route: 064
     Dates: start: 202107

REACTIONS (2)
  - Dysmorphism [Unknown]
  - Foetal exposure during pregnancy [Unknown]
